FAERS Safety Report 16710691 (Version 2)
Quarter: 2019Q4

REPORT INFORMATION
  Report Type: Spontaneous
  Country: FR (occurrence: FR)
  Receive Date: 20190816
  Receipt Date: 20191108
  Transmission Date: 20200122
  Serious: Yes (Death, Hospitalization, Other)
  Sender: FDA-Public Use
  Company Number: FR-ASTRAZENECA-2019SF16151

PATIENT
  Age: 23142 Day
  Sex: Male
  Weight: 57 kg

DRUGS (6)
  1. DUROGESIC [Concomitant]
     Active Substance: FENTANYL
     Route: 062
  2. PENTASA [Concomitant]
     Active Substance: MESALAMINE
  3. PANTOPRAZOLE [Concomitant]
     Active Substance: PANTOPRAZOLE
     Route: 048
     Dates: end: 20180808
  4. IMFINZI [Suspect]
     Active Substance: DURVALUMAB
     Indication: NON-SMALL CELL LUNG CANCER
     Dosage: 10.0MG/KG UNKNOWN
     Route: 042
     Dates: start: 20181220, end: 20190627
  5. IMOVANE [Concomitant]
     Active Substance: ZOPICLONE
     Route: 048
  6. IMFINZI [Suspect]
     Active Substance: DURVALUMAB
     Indication: NON-SMALL CELL LUNG CANCER
     Dosage: RECEIVED 14TH AND LAST CYCLE OF IMFINZI (650 MG). UNKNOWN
     Route: 042
     Dates: start: 20190627, end: 20190627

REACTIONS (15)
  - Red blood cell count decreased [Unknown]
  - Neutropenia [Unknown]
  - Confusional state [Unknown]
  - Staphylococcus test positive [Unknown]
  - General physical health deterioration [Not Recovered/Not Resolved]
  - Pleural effusion [Unknown]
  - Pancytopenia [Not Recovered/Not Resolved]
  - Tachycardia [Unknown]
  - Sepsis [Fatal]
  - Pneumonia [Not Recovered/Not Resolved]
  - Fatigue [Not Recovered/Not Resolved]
  - Insomnia [Not Recovered/Not Resolved]
  - Weight decreased [Not Recovered/Not Resolved]
  - Haemoglobin decreased [Unknown]
  - Hyperthermia [Unknown]

NARRATIVE: CASE EVENT DATE: 20190626
